FAERS Safety Report 17433340 (Version 2)
Quarter: 2020Q2

REPORT INFORMATION
  Report Type: Spontaneous
  Country: US (occurrence: US)
  Receive Date: 20200219
  Receipt Date: 20200419
  Transmission Date: 20200713
  Serious: No
  Sender: FDA-Public Use
  Company Number: US-ASTRAZENECA-2020SE23386

PATIENT
  Sex: Male

DRUGS (10)
  1. SYNAGIS [Suspect]
     Active Substance: PALIVIZUMAB
     Indication: COMPLICATION OF DELIVERY
     Route: 030
     Dates: start: 20191210
  2. SYNAGIS [Suspect]
     Active Substance: PALIVIZUMAB
     Indication: PREMATURE BABY
     Route: 030
     Dates: start: 20191210
  3. SYNAGIS [Suspect]
     Active Substance: PALIVIZUMAB
     Indication: PROPHYLAXIS
     Route: 030
     Dates: start: 20181127
  4. SYNAGIS [Suspect]
     Active Substance: PALIVIZUMAB
     Indication: PROPHYLAXIS
     Route: 030
     Dates: start: 20191210
  5. SYNAGIS [Suspect]
     Active Substance: PALIVIZUMAB
     Indication: PREMATURE BABY
     Route: 030
     Dates: start: 20191210
  6. SYNAGIS [Suspect]
     Active Substance: PALIVIZUMAB
     Indication: ASTHMA
     Route: 030
     Dates: start: 20181127
  7. SYNAGIS [Suspect]
     Active Substance: PALIVIZUMAB
     Indication: ASTHMA
     Route: 030
     Dates: start: 20191210
  8. SYNAGIS [Suspect]
     Active Substance: PALIVIZUMAB
     Indication: COMPLICATION OF DELIVERY
     Route: 030
     Dates: start: 20181127
  9. SYNAGIS [Suspect]
     Active Substance: PALIVIZUMAB
     Indication: PREMATURE BABY
     Route: 030
     Dates: start: 20181127
  10. SYNAGIS [Suspect]
     Active Substance: PALIVIZUMAB
     Indication: PREMATURE BABY
     Route: 030
     Dates: start: 20181127

REACTIONS (1)
  - No adverse event [Unknown]
